FAERS Safety Report 24076297 (Version 1)
Quarter: 2024Q3

REPORT INFORMATION
  Report Type: Spontaneous
  Country: US (occurrence: US)
  Receive Date: 20240711
  Receipt Date: 20240711
  Transmission Date: 20241017
  Serious: No
  Sender: STRIDES
  Company Number: US-STRIDES ARCOLAB LIMITED-2023SP018680

PATIENT
  Sex: Male
  Weight: 102.04 kg

DRUGS (1)
  1. TESTOSTERONE [Suspect]
     Active Substance: TESTOSTERONE
     Indication: Blood testosterone decreased
     Dosage: UNK, 05, GEL, TIMES A WEEK, TOPICAL(APPLYING ON SHOULDERS)
     Route: 061
     Dates: start: 20231207, end: 20231209

REACTIONS (4)
  - Affective disorder [Unknown]
  - Sexual dysfunction [Unknown]
  - Sleep disorder [Unknown]
  - Drug ineffective [Unknown]
